FAERS Safety Report 17192257 (Version 2)
Quarter: 2020Q3

REPORT INFORMATION
  Report Type: Report from Study
  Country: CA (occurrence: CA)
  Receive Date: 20191223
  Receipt Date: 20200929
  Transmission Date: 20201102
  Serious: Yes (Other)
  Sender: FDA-Public Use
  Company Number: CA-JNJFOC-20191223475

PATIENT
  Age: 68 Year
  Sex: Female
  Weight: 43.2 kg

DRUGS (2)
  1. REMICADE [Suspect]
     Active Substance: INFLIXIMAB
     Indication: CROHN^S DISEASE
     Route: 042
  2. METHOTREXATE. [Concomitant]
     Active Substance: METHOTREXATE
     Indication: PRODUCT USED FOR UNKNOWN INDICATION
     Route: 058

REACTIONS (4)
  - Basal cell carcinoma [Recovered/Resolved]
  - Genital disorder [Recovered/Resolved]
  - Impaired healing [Unknown]
  - Erythema [Unknown]

NARRATIVE: CASE EVENT DATE: 20191121
